FAERS Safety Report 10023531 (Version 1)
Quarter: 2014Q1

REPORT INFORMATION
  Report Type: Spontaneous
  Country: US (occurrence: None)
  Receive Date: 20140102
  Receipt Date: 20140102
  Transmission Date: 20141002
  Serious: Yes (Other)
  Sender: FDA-Public Use
  Company Number: 2013SA099875

PATIENT
  Age: 74 Year
  Sex: Male

DRUGS (4)
  1. LANTUS [Suspect]
     Indication: TYPE 2 DIABETES MELLITUS
     Route: 058
  2. METFORMIN [Suspect]
  3. GLYBURIDE [Suspect]
  4. SOLOSTAR [Concomitant]

REACTIONS (5)
  - Renal disorder [None]
  - Eye disorder [None]
  - Syringe issue [None]
  - Blood glucose increased [None]
  - Blood glucose decreased [None]
